FAERS Safety Report 10238207 (Version 2)
Quarter: 2014Q2

REPORT INFORMATION
  Report Type: Spontaneous
  Country: NO (occurrence: NO)
  Receive Date: 20140616
  Receipt Date: 20140616
  Transmission Date: 20141212
  Serious: Yes (Hospitalization, Other)
  Sender: FDA-Public Use
  Company Number: NO-JNJFOC-20140517017

PATIENT
  Age: 84 Year
  Sex: Male

DRUGS (15)
  1. XARELTO [Suspect]
     Indication: CEREBROVASCULAR ACCIDENT PROPHYLAXIS
     Route: 048
     Dates: start: 201404
  2. XARELTO [Suspect]
     Indication: ATRIAL FIBRILLATION
     Route: 048
     Dates: start: 201404
  3. SIMVASTATIN [Concomitant]
     Route: 065
  4. ZYLORIC [Concomitant]
     Route: 065
  5. SOMAC [Concomitant]
     Route: 065
  6. FURIX [Concomitant]
     Route: 065
  7. OXYCONTIN [Concomitant]
     Route: 065
  8. LACTULOSE [Concomitant]
     Route: 065
  9. TITRALAC [Concomitant]
     Route: 065
  10. METOPROLOL [Concomitant]
     Route: 065
  11. AMOXYCILLIN [Concomitant]
     Indication: URINARY TRACT INFECTION
     Route: 065
     Dates: end: 20140510
  12. ARANESP [Concomitant]
     Route: 065
  13. ETALPHA [Concomitant]
     Route: 065
  14. IMOVANE [Concomitant]
     Route: 065
  15. SOBRIL [Concomitant]
     Route: 065

REACTIONS (21)
  - Diarrhoea [Unknown]
  - Femur fracture [Unknown]
  - Haemorrhage [Unknown]
  - Anaemia [Unknown]
  - Syncope [Unknown]
  - Hypotension [Unknown]
  - Melaena [Unknown]
  - Pulmonary congestion [Unknown]
  - Dizziness [Unknown]
  - Electrocardiogram QRS complex [Unknown]
  - Gastroduodenitis [Unknown]
  - Oesophagitis [Unknown]
  - Lipoma [Unknown]
  - Large intestine polyp [Unknown]
  - Electrocardiogram PQ interval prolonged [Unknown]
  - Skin discolouration [Unknown]
  - Renal impairment [Unknown]
  - Epistaxis [Unknown]
  - Urinary tract infection [Unknown]
  - Clostridium test positive [Unknown]
  - Haematoma [Unknown]
